FAERS Safety Report 19438994 (Version 2)
Quarter: 2021Q2

REPORT INFORMATION
  Report Type: Report from Study
  Country: US (occurrence: US)
  Receive Date: 20210618
  Receipt Date: 20210625
  Transmission Date: 20210717
  Serious: Yes (Hospitalization, Other)
  Sender: FDA-Public Use
  Company Number: US-BRISTOL-MYERS SQUIBB COMPANY-BMS-2021-056213

PATIENT
  Age: 69 Year
  Sex: Male

DRUGS (2)
  1. BEMPEGALDESLEUKIN [Suspect]
     Active Substance: BEMPEGALDESLEUKIN
     Indication: MALIGNANT MELANOMA
     Dosage: 0.63 MILLIGRAM, Q3WK
     Route: 042
     Dates: start: 20201218, end: 20210526
  2. NIVOLUMAB [Suspect]
     Active Substance: NIVOLUMAB
     Indication: MALIGNANT MELANOMA
     Dosage: 360 MILLIGRAM, Q3WK
     Route: 042
     Dates: start: 20201218, end: 20210526

REACTIONS (2)
  - Oesophagitis [Recovered/Resolved]
  - Autoimmune nephritis [Recovered/Resolved]

NARRATIVE: CASE EVENT DATE: 20210525
